FAERS Safety Report 5586883-0 (Version None)
Quarter: 2008Q1

REPORT INFORMATION
  Report Type: 
  Country: None (occurrence: None)
  Receive Date: 20080108
  Receipt Date: 20080108
  Transmission Date: 20080703
  Serious: Yes (Other)
  Sender: FDA-Public Use
  Company Number: None

PATIENT
  Age: 56 Year
  Sex: Female
  Weight: 53.5244 kg

DRUGS (6)
  1. REMICADE [Suspect]
     Indication: ANKYLOSING SPONDYLITIS
     Dosage: 30 MG/KG  Q 6 WEEKS  IV
     Route: 042
     Dates: start: 20050630, end: 20070813
  2. KETOPROFEN [Concomitant]
  3. CENESTIN [Concomitant]
  4. HORMONE REPLACEMENT THERAPY [Concomitant]
  5. NEXIUM [Concomitant]
  6. RANITIDINE [Concomitant]

REACTIONS (3)
  - CYTOMEGALOVIRUS TEST [None]
  - INFECTIOUS MONONUCLEOSIS [None]
  - PNEUMONIA [None]
